FAERS Safety Report 20476498 (Version 2)
Quarter: 2022Q2

REPORT INFORMATION
  Report Type: Spontaneous
  Country: US (occurrence: US)
  Receive Date: 20220215
  Receipt Date: 20220408
  Transmission Date: 20220721
  Serious: Yes (Hospitalization, Other)
  Sender: FDA-Public Use
  Company Number: US-GILEAD-2022-0569538

PATIENT
  Age: 11 Year
  Sex: Male
  Weight: 36.7 kg

DRUGS (26)
  1. REMDESIVIR [Suspect]
     Active Substance: REMDESIVIR
     Indication: COVID-19
     Dosage: 183.5 MG, ONCE
     Route: 042
     Dates: start: 20220118, end: 20220118
  2. REMDESIVIR [Suspect]
     Active Substance: REMDESIVIR
     Dosage: 91.75 MG, QD
     Route: 042
     Dates: start: 20220119, end: 20220120
  3. NELARABINE [Concomitant]
     Active Substance: NELARABINE
     Dosage: 750 MG, QD
     Dates: start: 20220124, end: 20220128
  4. CYCLOPHOSPHAMIDE [Concomitant]
     Active Substance: CYCLOPHOSPHAMIDE
     Dosage: 1200 MG
     Dates: start: 20220131, end: 20220131
  5. CYTARABINE [Concomitant]
     Active Substance: CYTARABINE
     Dosage: 90 MG, QD
     Dates: start: 20220131, end: 20220209
  6. MERCAPTOPURINE [Concomitant]
     Active Substance: MERCAPTOPURINE
     Dosage: 72 MG, QD
     Dates: start: 20220131, end: 20220209
  7. METHOTREXATE [Concomitant]
     Active Substance: METHOTREXATE
     Dosage: UNK
     Route: 037
     Dates: start: 20211227, end: 20211227
  8. VINCRISTINE [Concomitant]
     Active Substance: VINCRISTINE
     Dosage: 1.8 MG, Q1WK
     Dates: start: 20211227, end: 20220103
  9. PEGASPARGASE [Concomitant]
     Active Substance: PEGASPARGASE
     Dosage: 3000 IU ONCE
     Dates: start: 20211227, end: 20211227
  10. FOSAPREPITANT [Concomitant]
     Active Substance: FOSAPREPITANT
     Dosage: 120 MG, ONCE
     Dates: start: 20220131, end: 20220131
  11. HYDROCHLOROTHIAZIDE [Concomitant]
     Active Substance: HYDROCHLOROTHIAZIDE
     Dosage: 123.5 MG, QD
     Dates: start: 20211204, end: 20220209
  12. SERTRALINE [Concomitant]
     Active Substance: SERTRALINE HYDROCHLORIDE
     Dosage: 50 MG, QD
     Dates: start: 20211105, end: 20220209
  13. BACTRIM [Concomitant]
     Active Substance: SULFAMETHOXAZOLE\TRIMETHOPRIM
     Dosage: 100 MG TMP COMPONET BID ON SAT AND SUN
     Dates: start: 20211106, end: 20220209
  14. ESOMEPRAZOLE [Concomitant]
     Active Substance: ESOMEPRAZOLE
     Dosage: 40 MG, QD
     Dates: start: 20220124, end: 20220209
  15. ACETAMINOPHEN [Concomitant]
     Active Substance: ACETAMINOPHEN
  16. CLONIDINE [Concomitant]
     Active Substance: CLONIDINE
  17. DIPHENHYDRAMINE [Concomitant]
     Active Substance: DIPHENHYDRAMINE
  18. GABAPENTIN [Concomitant]
     Active Substance: GABAPENTIN
  19. KATERZIA [Concomitant]
     Active Substance: AMLODIPINE BENZOATE
  20. LEVOFLOXACIN [Concomitant]
     Active Substance: LEVOFLOXACIN
  21. LIDOCAINE AND PRILOCAINE [Concomitant]
     Active Substance: LIDOCAINE\PRILOCAINE
  22. LORAZEPAM [Concomitant]
     Active Substance: LORAZEPAM
  23. MELATONIN [Concomitant]
     Active Substance: MELATONIN
  24. ONDANSETRON [Concomitant]
     Active Substance: ONDANSETRON
  25. POLYETHYLENE GLYCOLS [Concomitant]
     Active Substance: POLYETHYLENE GLYCOLS
  26. SULFAMETHOXAZOLE\TRIMETHOPRIM [Concomitant]
     Active Substance: SULFAMETHOXAZOLE\TRIMETHOPRIM

REACTIONS (6)
  - Hypothalamo-pituitary disorder [Not Recovered/Not Resolved]
  - Neurotoxicity [Recovered/Resolved]
  - CSF red blood cell count positive [Not Recovered/Not Resolved]
  - Thrombocytopenia [Recovered/Resolved]
  - Anaemia [Recovered/Resolved]
  - Liver function test increased [Recovered/Resolved]

NARRATIVE: CASE EVENT DATE: 20220207
